FAERS Safety Report 5566507-9 (Version None)
Quarter: 2007Q4

REPORT INFORMATION
  Report Type: 
  Country: None (occurrence: None)
  Receive Date: 20071214
  Receipt Date: 20071130
  Transmission Date: 20080405
  Serious: Yes (Hospitalization)
  Sender: FDA-Public Use
  Company Number: POMP-10996

PATIENT
  Age: 7 Month
  Sex: Male
  Weight: 5.3 kg

DRUGS (8)
  1. MYOZYME [Suspect]
     Indication: GLYCOGEN STORAGE DISEASE TYPE II
     Dosage: 20 MG/KG Q2WKS IV
     Route: 042
     Dates: start: 20060911
  2. MYOZYME [Suspect]
  3. MYOZYME [Suspect]
  4. BACTRIM [Concomitant]
  5. RITUXIMAB [Concomitant]
  6. METHOTREXATE [Concomitant]
  7. BENADRYL [Concomitant]
  8. TYLENOL [Concomitant]

REACTIONS (13)
  - BACTERIA STOOL IDENTIFIED [None]
  - BRONCHIAL HYPERREACTIVITY [None]
  - CENTRAL LINE INFECTION [None]
  - CONDITION AGGRAVATED [None]
  - ENTEROBACTER BACTERAEMIA [None]
  - EYELID FUNCTION DISORDER [None]
  - HAEMOGLOBIN DECREASED [None]
  - LOBAR PNEUMONIA [None]
  - NYSTAGMUS [None]
  - PARAINFLUENZAE VIRUS INFECTION [None]
  - RESPIRATORY DISTRESS [None]
  - STAPHYLOCOCCAL BACTERAEMIA [None]
  - WEANING FAILURE [None]
